FAERS Safety Report 8533842 (Version 7)
Quarter: 2013Q1

REPORT INFORMATION
  Report Type: Report from Study
  Country: US (occurrence: US)
  Receive Date: 20120427
  Receipt Date: 20130213
  Transmission Date: 20140127
  Serious: Yes (Life-Threatening, Hospitalization)
  Sender: FDA-Public Use
  Company Number: US-SANOFI-AVENTIS-2012SA015636

PATIENT
  Age: 58 Year
  Sex: Male
  Weight: 121.7 kg

DRUGS (26)
  1. DOCETAXEL [Suspect]
     Indication: PROSTATE CANCER METASTATIC
     Route: 042
     Dates: start: 20110930, end: 20110930
  2. DOCETAXEL [Suspect]
     Indication: PROSTATE CANCER METASTATIC
     Route: 042
     Dates: start: 20120223, end: 20120223
  3. PREDNISONE [Suspect]
     Indication: PROSTATE CANCER METASTATIC
     Route: 048
     Dates: start: 20110930, end: 20120305
  4. ACYCLOVIR [Concomitant]
     Route: 048
     Dates: start: 20101020
  5. BISOPROLOL [Concomitant]
     Route: 048
     Dates: start: 20080606
  6. CARBOXYMETHYLCELLULOSE SODIUM [Concomitant]
     Route: 047
     Dates: start: 20101206
  7. DORZOLAMIDE [Concomitant]
     Route: 047
     Dates: start: 20101018
  8. DOXYCYCLINE HYCLATE [Concomitant]
     Route: 048
     Dates: start: 20110819
  9. EZETIMIBE [Concomitant]
     Route: 048
     Dates: start: 20080606
  10. GLIPIZIDE [Concomitant]
     Route: 048
     Dates: start: 20100825
  11. HYDROCORTISONE [Concomitant]
     Route: 048
     Dates: start: 20110701
  12. GOSERELIN [Concomitant]
     Route: 058
     Dates: start: 20110924
  13. LISINOPRIL [Concomitant]
     Route: 048
     Dates: start: 20100521
  14. METFORMIN [Concomitant]
     Route: 048
     Dates: start: 20100521
  15. PIOGLITAZONE [Concomitant]
     Route: 048
     Dates: start: 20100521
  16. ROSUVASTATIN [Concomitant]
     Route: 048
     Dates: start: 20080606
  17. SERTRALINE HYDROCHLORIDE [Concomitant]
     Route: 048
     Dates: start: 20110118
  18. ASPIRIN [Concomitant]
     Route: 048
  19. BIOTIN [Concomitant]
     Route: 048
  20. CALCIUM [Concomitant]
     Route: 048
  21. CHOLECALCIFEROL [Concomitant]
     Route: 048
  22. HERBAL PREPARATION [Concomitant]
     Route: 048
  23. FISH OIL [Concomitant]
     Route: 048
  24. FOLIC ACID [Concomitant]
     Route: 048
  25. GARLIC [Concomitant]
     Route: 048
  26. ST MARY^S THISTLE [Concomitant]
     Route: 048

REACTIONS (1)
  - Encephalopathy [Recovered/Resolved]
